FAERS Safety Report 8604453-4 (Version None)
Quarter: 2012Q3

REPORT INFORMATION
  Report Type: 
  Country: None (occurrence: None)
  Receive Date: 20120806
  Receipt Date: 20120806
  Transmission Date: 20120928
  Serious: Yes (Other)
  Sender: FDA-Public Use
  Company Number: None

PATIENT
  Age: 30 Year
  Sex: Female
  Weight: 65 kg

DRUGS (4)
  1. ESCITALOPRAM OXALATE [Suspect]
     Indication: DEPRESSED MOOD
     Dosage: 10MG 1PER DAY PO
     Route: 048
     Dates: start: 20120528, end: 20120628
  2. ESCITALOPRAM OXALATE [Suspect]
     Indication: DEPRESSIVE SYMPTOM
     Dosage: 10MG 1PER DAY PO
     Route: 048
     Dates: start: 20120528, end: 20120628
  3. ESCITALOPRAM OXALATE [Suspect]
     Indication: DEPRESSED MOOD
     Dosage: 10MG 1PER DAY PO
     Route: 048
     Dates: start: 20120228, end: 20120331
  4. ESCITALOPRAM OXALATE [Suspect]
     Indication: DEPRESSIVE SYMPTOM
     Dosage: 10MG 1PER DAY PO
     Route: 048
     Dates: start: 20120228, end: 20120331

REACTIONS (4)
  - ASTHENIA [None]
  - BLOOD TEST ABNORMAL [None]
  - ERYTHROPENIA [None]
  - NEUTROPENIA [None]
